FAERS Safety Report 7725157-6 (Version None)
Quarter: 2011Q3

REPORT INFORMATION
  Report Type: 
  Country: None (occurrence: None)
  Receive Date: 20110901
  Receipt Date: 20110825
  Transmission Date: 20111222
  Serious: Yes (Hospitalization)
  Sender: FDA-Public Use
  Company Number: US-MERCK-1108USA00714B1

PATIENT
  Age: 0 Day
  Sex: Male
  Weight: 3 kg

DRUGS (1)
  1. SINGULAIR [Suspect]
     Indication: ASTHMA
     Route: 064
     Dates: start: 20080624, end: 20080101

REACTIONS (6)
  - MATERNAL EXPOSURE DURING PREGNANCY [None]
  - IRRITABILITY [None]
  - UMBILICAL CORD SHORT [None]
  - FOETAL HEART RATE DECREASED [None]
  - PREMATURE BABY [None]
  - GASTROOESOPHAGEAL REFLUX DISEASE [None]
